FAERS Safety Report 16061227 (Version 2)
Quarter: 2019Q1

REPORT INFORMATION
  Report Type: Spontaneous
  Country: TR (occurrence: TR)
  Receive Date: 20190312
  Receipt Date: 20190322
  Transmission Date: 20190418
  Serious: Yes (Hospitalization)
  Sender: FDA-Public Use
  Company Number: TR-TAKEDA-2019TUS012845

PATIENT
  Age: 60 Year
  Sex: Male
  Weight: 62 kg

DRUGS (24)
  1. DARATUMUMAB [Suspect]
     Active Substance: DARATUMUMAB
     Indication: AMYLOIDOSIS
     Dosage: 1800 MILLIGRAM, Q2WEEKS
     Route: 058
     Dates: start: 20181120
  2. KOLSIN [Concomitant]
     Active Substance: COLCHICINE
     Indication: PROTEINURIA
     Dosage: 0.5 MILLIGRAM, BID
     Route: 048
  3. RABEPRAZOLE [Concomitant]
     Active Substance: RABEPRAZOLE
     Indication: GASTROINTESTINAL DISORDER THERAPY
     Dosage: 20 MILLIGRAM, QD
     Route: 048
     Dates: start: 20190104
  4. RUPATADINE [Concomitant]
     Active Substance: RUPATADINE
     Indication: RASH
     Dosage: 10 MILLIGRAM, QD
     Route: 048
     Dates: start: 20190104, end: 20190108
  5. GRANISETRON [Concomitant]
     Active Substance: GRANISETRON
     Indication: NAUSEA
     Dosage: 3 MILLIGRAM
     Route: 042
     Dates: start: 20190201
  6. CLARITHROMYCIN. [Concomitant]
     Active Substance: CLARITHROMYCIN
     Indication: INFECTION PROPHYLAXIS
     Dosage: 500 MILLIGRAM, BID
     Route: 042
     Dates: start: 20190201
  7. METHYLPREDNISOLONE. [Concomitant]
     Active Substance: METHYLPREDNISOLONE
     Indication: RASH
     Dosage: UNK
     Route: 061
     Dates: start: 20190104, end: 20190108
  8. PARACETAMOL [Concomitant]
     Active Substance: ACETAMINOPHEN
     Indication: PAIN PROPHYLAXIS
     Dosage: 10 MILLIGRAM, BID
     Route: 042
     Dates: start: 20190116
  9. FUROSEMIDE. [Concomitant]
     Active Substance: FUROSEMIDE
     Indication: FACE OEDEMA
     Dosage: 20 MILLIGRAM
     Route: 042
     Dates: start: 20190131
  10. CEFTRIAXONE. [Concomitant]
     Active Substance: CEFTRIAXONE
     Indication: PROPHYLAXIS
     Dosage: 2000 MILLIGRAM, QD
     Route: 042
     Dates: start: 20190201
  11. ATROPINE W/DIPHENOXYLATE [Concomitant]
     Active Substance: ATROPINE\DIPHENOXYLATE
     Indication: DIARRHOEA
     Dosage: 2.5 MILLIGRAM, BID
     Route: 048
     Dates: start: 20190122, end: 20190225
  12. CALCIUM GLUCONATE. [Concomitant]
     Active Substance: CALCIUM GLUCONATE
     Indication: HYPOCALCAEMIA
     Dosage: 10 MILLILITER, QD
     Route: 042
     Dates: start: 20190128
  13. METOCLOPRAMIDE. [Concomitant]
     Active Substance: METOCLOPRAMIDE
     Indication: NAUSEA
     Dosage: 10 MILLIGRAM
     Route: 042
     Dates: start: 20190201
  14. CYCLOPHOSPHAMIDE. [Concomitant]
     Active Substance: CYCLOPHOSPHAMIDE
     Indication: AMYLOIDOSIS
     Dosage: 500 MILLIGRAM/SQ. METER, 1/WEEK
     Route: 048
     Dates: start: 20181120
  15. FUROSEMIDE. [Concomitant]
     Active Substance: FUROSEMIDE
     Indication: OEDEMA PERIPHERAL
     Dosage: 20 MILLIGRAM
     Route: 042
     Dates: start: 20190131
  16. PARACETAMOL [Concomitant]
     Active Substance: ACETAMINOPHEN
     Dosage: 10 MILLIGRAM, BID
     Route: 042
     Dates: start: 20190201
  17. NEUPOGEN [Concomitant]
     Active Substance: FILGRASTIM
     Indication: NEUTROPENIA
     Dosage: 0.5 MILLIGRAM, QD
     Route: 058
     Dates: start: 20190205, end: 20190209
  18. POTASSIUM CITRATE. [Concomitant]
     Active Substance: POTASSIUM CITRATE
     Indication: HYPOKALAEMIA
     Dosage: 4000 MILLIGRAM, QD
     Route: 048
     Dates: start: 20190218, end: 20190222
  19. COZAAR [Concomitant]
     Active Substance: LOSARTAN POTASSIUM
     Indication: PROTEINURIA
     Dosage: 50 MILLIGRAM, QD
     Route: 048
     Dates: start: 2018
  20. PARACETAMOL [Concomitant]
     Active Substance: ACETAMINOPHEN
     Indication: DIARRHOEA
     Dosage: 10 MILLIGRAM, BID
     Route: 042
     Dates: start: 20190116
  21. PARACETAMOL [Concomitant]
     Active Substance: ACETAMINOPHEN
     Dosage: 10 MILLIGRAM, BID
     Route: 042
     Dates: start: 20190201
  22. METHYLPREDNISOLONE. [Concomitant]
     Active Substance: METHYLPREDNISOLONE
     Indication: RASH
     Dosage: 40 MILLIGRAM, QD
     Route: 048
     Dates: start: 20190104, end: 20190106
  23. BORTEZOMIB. [Suspect]
     Active Substance: BORTEZOMIB
     Indication: AMYLOIDOSIS
     Dosage: 1.7 MILLIGRAM/SQ. METER, 1/WEEK
     Route: 058
     Dates: start: 20181120
  24. DEXAMETHASONE. [Concomitant]
     Active Substance: DEXAMETHASONE
     Indication: AMYLOIDOSIS
     Dosage: 40 MILLIGRAM, 1/WEEK
     Route: 003
     Dates: start: 20181120

REACTIONS (5)
  - Purpura [Recovering/Resolving]
  - Herpes virus infection [Unknown]
  - Peripheral sensorimotor neuropathy [Recovering/Resolving]
  - Product use in unapproved indication [Unknown]
  - Off label use [Unknown]

NARRATIVE: CASE EVENT DATE: 20181120
